FAERS Safety Report 7776949-9 (Version None)
Quarter: 2011Q3

REPORT INFORMATION
  Report Type: 
  Country: None (occurrence: None)
  Receive Date: 20110926
  Receipt Date: 20110915
  Transmission Date: 20111222
  Serious: Yes (Other)
  Sender: FDA-Public Use
  Company Number: AU-SANOFI-AVENTIS-2011SA060025

PATIENT
  Age: 76 Year
  Sex: Female

DRUGS (15)
  1. ARAVA [Suspect]
     Route: 048
     Dates: start: 20080101
  2. KARVEA [Concomitant]
  3. KEFLEX [Concomitant]
  4. CLONIDINE [Concomitant]
  5. FISH OIL [Concomitant]
  6. CITALOPRAM [Concomitant]
  7. MAGNESIUM [Concomitant]
  8. TRAMADOL HYDROCHLORIDE [Concomitant]
  9. Q10 [Concomitant]
  10. PANAMAX [Concomitant]
  11. CALCIUM CARBONATE [Concomitant]
  12. AMLODIPINE [Concomitant]
  13. FOLIC ACID [Concomitant]
  14. METHOTREXATE [Concomitant]
  15. RABEPRAZOLE SODIUM [Concomitant]

REACTIONS (4)
  - KNEE ARTHROPLASTY [None]
  - WEIGHT DECREASED [None]
  - BODY TEMPERATURE INCREASED [None]
  - RESPIRATORY TRACT INFECTION [None]
